FAERS Safety Report 9344766 (Version 1)
Quarter: 2013Q2

REPORT INFORMATION
  Report Type: Report from Study
  Country: CA (occurrence: CA)
  Receive Date: 20130612
  Receipt Date: 20130612
  Transmission Date: 20140414
  Serious: Yes (Hospitalization)
  Sender: FDA-Public Use
  Company Number: CA-JNJFOC-20120712875

PATIENT
  Age: 43 Year
  Sex: Male
  Weight: 61.24 kg

DRUGS (3)
  1. REMICADE [Suspect]
     Indication: CROHN^S DISEASE
     Route: 042
     Dates: start: 20071211, end: 20120426
  2. REMICADE [Suspect]
     Indication: CROHN^S DISEASE
     Route: 042
     Dates: start: 20130502
  3. REMICADE [Suspect]
     Indication: CROHN^S DISEASE
     Dosage: 52 WEEKS
     Route: 042
     Dates: start: 2004

REACTIONS (1)
  - Colostomy [Unknown]
